FAERS Safety Report 12498478 (Version 1)
Quarter: 2016Q2

REPORT INFORMATION
  Report Type: Spontaneous
  Country: FR (occurrence: FR)
  Receive Date: 20160627
  Receipt Date: 20160627
  Transmission Date: 20160815
  Serious: Yes (Other)
  Sender: FDA-Public Use
  Company Number: FR-009507513-1606FRA011123

PATIENT
  Sex: Female

DRUGS (1)
  1. FOSAMAX [Suspect]
     Active Substance: ALENDRONATE SODIUM
     Indication: OSTEOPOROSIS POSTMENOPAUSAL
     Dosage: 70 MG, UNK

REACTIONS (5)
  - Gastric bypass [Unknown]
  - Inappropriate schedule of drug administration [Unknown]
  - Breath odour [Unknown]
  - Gastrooesophageal reflux disease [Unknown]
  - Drug prescribing error [Unknown]
